FAERS Safety Report 5830996-2 (Version None)
Quarter: 2008Q3

REPORT INFORMATION
  Report Type: 
  Country: None (occurrence: None)
  Receive Date: 20080801
  Receipt Date: 20080123
  Transmission Date: 20090109
  Serious: No
  Sender: FDA-Public Use
  Company Number: US-BRISTOL-MYERS SQUIBB COMPANY-14107411

PATIENT

DRUGS (1)
  1. COUMADIN [Suspect]
     Indication: CARDIOVASCULAR DISORDER

REACTIONS (1)
  - MACULAR DEGENERATION [None]
